FAERS Safety Report 6939302-3 (Version None)
Quarter: 2010Q3

REPORT INFORMATION
  Report Type: 
  Country: None (occurrence: None)
  Receive Date: 20100824
  Receipt Date: 20100823
  Transmission Date: 20110219
  Serious: Yes (Life-Threatening)
  Sender: FDA-Public Use
  Company Number: GB-PERRIGO-10GB012371

PATIENT
  Age: 62 Year
  Sex: Male

DRUGS (4)
  1. NAPROXEN SODIUM 12063/0054 250 MG [Suspect]
     Indication: PAIN
     Dosage: 250 MG, UNK
     Route: 048
     Dates: end: 20100809
  2. ASPIRIN [Suspect]
     Indication: PRODUCT USED FOR UNKNOWN INDICATION
     Dosage: 75 MG, UNK
     Route: 048
     Dates: end: 20100809
  3. SIMVASTATIN [Concomitant]
     Indication: HYPERCHOLESTEROLAEMIA
     Dosage: 40 MG, UNK
     Route: 048
  4. TRAMADOL HCL [Concomitant]
     Indication: PAIN
     Dosage: 50 MG, UNK
     Route: 048

REACTIONS (2)
  - DUODENAL ULCER [None]
  - GASTROINTESTINAL HAEMORRHAGE [None]
